FAERS Safety Report 5915918-8 (Version None)
Quarter: 2008Q4

REPORT INFORMATION
  Report Type: 
  Country: None (occurrence: None)
  Receive Date: 20081010
  Receipt Date: 20080930
  Transmission Date: 20090506
  Serious: Yes (Other)
  Sender: FDA-Public Use
  Company Number: US-PFIZER INC-2008060599

PATIENT
  Sex: Female
  Weight: 63.5 kg

DRUGS (2)
  1. CHANTIX [Suspect]
     Indication: SMOKING CESSATION THERAPY
     Route: 048
     Dates: start: 20080408, end: 20080506
  2. ANTIDEPRESSANTS [Suspect]
     Dates: start: 20080101

REACTIONS (16)
  - ABNORMAL BEHAVIOUR [None]
  - AGGRESSION [None]
  - ANXIETY [None]
  - DRUG CLEARANCE DECREASED [None]
  - FEELING ABNORMAL [None]
  - HALLUCINATION [None]
  - INJURY CORNEAL [None]
  - PANIC ATTACK [None]
  - PARANOIA [None]
  - PSYCHOTIC DISORDER [None]
  - ROTATOR CUFF SYNDROME [None]
  - SELF INJURIOUS BEHAVIOUR [None]
  - SUICIDAL IDEATION [None]
  - TENDON RUPTURE [None]
  - WEIGHT INCREASED [None]
  - WITHDRAWAL SYNDROME [None]
